FAERS Safety Report 14780437 (Version 3)
Quarter: 2018Q3

REPORT INFORMATION
  Report Type: Spontaneous
  Country: EG (occurrence: EG)
  Receive Date: 20180419
  Receipt Date: 20180724
  Transmission Date: 20181010
  Serious: Yes (Life-Threatening)
  Sender: FDA-Public Use
  Company Number: EG-BEH-2018089938

PATIENT
  Age: 21 Month
  Sex: Male
  Weight: 9 kg

DRUGS (2)
  1. PRIVIGEN [Suspect]
     Active Substance: HUMAN IMMUNOGLOBULIN G
     Indication: PRODUCT SUBSTITUTION
  2. PRIVIGEN [Suspect]
     Active Substance: HUMAN IMMUNOGLOBULIN G
     Indication: PRIMARY IMMUNODEFICIENCY SYNDROME
     Dosage: 0.5 MG/KG, SINGLE
     Route: 042
     Dates: start: 20180418, end: 20180418

REACTIONS (7)
  - Tachycardia [Recovered/Resolved]
  - Urticaria [Recovered/Resolved]
  - Wheezing [Recovered/Resolved]
  - Anaphylactic reaction [Recovered/Resolved]
  - Rash [Recovered/Resolved]
  - Pyrexia [Recovered/Resolved]
  - Bronchospasm [Recovered/Resolved]

NARRATIVE: CASE EVENT DATE: 20180418
